FAERS Safety Report 9146690 (Version 1)
Quarter: 2013Q1

REPORT INFORMATION
  Report Type: Spontaneous
  Country: US (occurrence: None)
  Receive Date: 20130228
  Receipt Date: 20130228
  Transmission Date: 20140127
  Serious: Yes (Other)
  Sender: FDA-Public Use
  Company Number: None

PATIENT
  Age: 46 Year
  Sex: Male

DRUGS (1)
  1. LEVALBUTEROL HCL [Suspect]
     Indication: ASTHMA
     Dosage: 0.63MG/3ML VIA NEBULIZER?PT HAD SOME EXPERIENCE WITH ALBUTEROL NO TACHYCARDIA WITH ________________
     Dates: start: 201301

REACTIONS (2)
  - Tremor [None]
  - Tachycardia [None]
